FAERS Safety Report 9275005 (Version 2)
Quarter: 2013Q1

REPORT INFORMATION
  Report Type: Spontaneous
  Country: GB (occurrence: None)
  Receive Date: 20130322
  Receipt Date: 20130326
  Transmission Date: 20140127
  Serious: Yes (Hospitalization, Other)
  Sender: FDA-Public Use
  Company Number: AUR-APL-2013-02311

PATIENT
  Age: 37 Year
  Sex: Female
  Weight: 69 kg

DRUGS (3)
  1. CITALOPRAM [Suspect]
     Route: 048
     Dates: start: 20130127, end: 20130131
  2. CITALOPRAM [Suspect]
     Indication: DEPRESSION
     Route: 048
     Dates: start: 20130127, end: 20130131
  3. CO-CODAMOL (PANADEINE CO) [Concomitant]

REACTIONS (6)
  - Paraesthesia [None]
  - Asthenia [None]
  - Diarrhoea [None]
  - Nausea [None]
  - Dyspnoea [None]
  - Vomiting [None]
